FAERS Safety Report 16634326 (Version 3)
Quarter: 2019Q3

REPORT INFORMATION
  Report Type: Spontaneous
  Country: CA (occurrence: CA)
  Receive Date: 20190726
  Receipt Date: 20190814
  Transmission Date: 20191004
  Serious: Yes (Hospitalization, Other)
  Sender: FDA-Public Use
  Company Number: CA-CELLTRION INC.-2019CA020017

PATIENT

DRUGS (14)
  1. XARELTO [Concomitant]
     Active Substance: RIVAROXABAN
     Dosage: UNK
     Route: 065
  2. 5-ASA [Concomitant]
     Active Substance: MESALAMINE
     Dosage: 40 MG TAPERING DOWN
     Route: 065
     Dates: start: 20190302
  3. INFLECTRA [Suspect]
     Active Substance: INFLIXIMAB-DYYB
     Dosage: 300 MG WEEK 2
     Route: 042
     Dates: start: 20190320, end: 20190320
  4. INFLECTRA [Suspect]
     Active Substance: INFLIXIMAB-DYYB
     Dosage: 400 MG WEEK 6 THEN EVERY 8 WEEKS
     Route: 042
     Dates: start: 20190610, end: 20190610
  5. EFFEXOR [Concomitant]
     Active Substance: VENLAFAXINE HYDROCHLORIDE
     Dosage: UNK
  6. ENTOCORT [Concomitant]
     Active Substance: BUDESONIDE
     Dosage: UNK
     Dates: start: 201802
  7. VITAMIN D [VITAMIN D NOS] [Concomitant]
     Active Substance: VITAMIN D NOS
     Dosage: UNK
  8. INFLECTRA [Suspect]
     Active Substance: INFLIXIMAB-DYYB
     Indication: CROHN^S DISEASE
     Dosage: UNK
     Route: 042
     Dates: start: 20180306, end: 20180306
  9. INFLECTRA [Suspect]
     Active Substance: INFLIXIMAB-DYYB
     Indication: COLITIS ULCERATIVE
     Dosage: 5 MG/KG, EVERY 0, 2, 6 WEEKS, THEN EVERY 8 WEEKS
     Route: 042
     Dates: start: 20180305, end: 20180305
  10. INFLECTRA [Suspect]
     Active Substance: INFLIXIMAB-DYYB
     Dosage: 400 MG WEEK 6 THEN EVERY 8 WEEKS
     Route: 042
     Dates: start: 20190417
  11. SYNTHROID [Concomitant]
     Active Substance: LEVOTHYROXINE SODIUM
     Dosage: UNK
  12. PREDNISONE. [Concomitant]
     Active Substance: PREDNISONE
     Dosage: 8 PILLS/ DAY 40 MG TAPERING DOWN
  13. INFLECTRA [Suspect]
     Active Substance: INFLIXIMAB-DYYB
     Dosage: 400 MG WEEK 6 THEN EVERY 8 WEEKS
     Route: 042
     Dates: start: 20190610
  14. MEZAVANT [Concomitant]
     Active Substance: MESALAMINE
     Dosage: 4 PILLS A DAY
     Route: 065

REACTIONS (9)
  - Interstitial lung disease [Unknown]
  - Off label use [Unknown]
  - Dyspnoea [Unknown]
  - Inappropriate schedule of product administration [Unknown]
  - Lung disorder [Unknown]
  - Pneumonia [Unknown]
  - Weight increased [Not Recovered/Not Resolved]
  - Condition aggravated [Unknown]
  - Drug level below therapeutic [Unknown]

NARRATIVE: CASE EVENT DATE: 201903
